FAERS Safety Report 18030527 (Version 2)
Quarter: 2020Q3

REPORT INFORMATION
  Report Type: Report from Study
  Country: US (occurrence: US)
  Receive Date: 20200715
  Receipt Date: 20200717
  Transmission Date: 20201103
  Serious: Yes (Death)
  Sender: FDA-Public Use
  Company Number: US-ACTELION-A-US2020-204544

PATIENT
  Sex: Female
  Weight: 46.26 kg

DRUGS (8)
  1. TIOTROPIUM BROMIDE [Concomitant]
     Active Substance: TIOTROPIUM BROMIDE
  2. OPSUMIT [Suspect]
     Active Substance: MACITENTAN
     Indication: PULMONARY ARTERIAL HYPERTENSION
     Dosage: 10 MG, QD
     Route: 048
     Dates: start: 202003
  3. QVAR REDIHALER [Concomitant]
     Active Substance: BECLOMETHASONE DIPROPIONATE
  4. SALBUTAMOL [Concomitant]
     Active Substance: ALBUTEROL
  5. DALIRESP [Concomitant]
     Active Substance: ROFLUMILAST
  6. VITAMIN D [VITAMIN D NOS] [Concomitant]
     Active Substance: VITAMIN D NOS
  7. POTASSIUM [Concomitant]
     Active Substance: POTASSIUM
  8. FUROSEMIDE. [Concomitant]
     Active Substance: FUROSEMIDE

REACTIONS (8)
  - Nasal congestion [Unknown]
  - Dyspnoea [Unknown]
  - Myocardial infarction [Fatal]
  - Disease progression [Fatal]
  - Malaise [Unknown]
  - Headache [Unknown]
  - Pulmonary vascular disorder [Unknown]
  - Pulmonary hypertension [Fatal]
